FAERS Safety Report 17668570 (Version 1)
Quarter: 2020Q2

REPORT INFORMATION
  Report Type: Spontaneous
  Country: US (occurrence: US)
  Receive Date: 20200415
  Receipt Date: 20200415
  Transmission Date: 20200713
  Serious: No
  Sender: FDA-Public Use
  Company Number: US-MTPC-MTDA2020-0050093

PATIENT
  Age: 58 Year
  Sex: Female

DRUGS (1)
  1. RADICAVA [Suspect]
     Active Substance: EDARAVONE
     Indication: PRODUCT USED FOR UNKNOWN INDICATION
     Dosage: 30MG/100ML
     Route: 065
     Dates: start: 201902, end: 202001

REACTIONS (1)
  - Drug ineffective [Unknown]
